FAERS Safety Report 14333031 (Version 5)
Quarter: 2018Q1

REPORT INFORMATION
  Report Type: Report from Study
  Country: AU (occurrence: AU)
  Receive Date: 20171228
  Receipt Date: 20180316
  Transmission Date: 20180509
  Serious: Yes (Hospitalization)
  Sender: FDA-Public Use
  Company Number: PHHO2017AU014803

PATIENT
  Age: 42 Year
  Sex: Male
  Weight: 143.3 kg

DRUGS (6)
  1. PREDNISONE. [Suspect]
     Active Substance: PREDNISONE
     Indication: PSORIATIC ARTHROPATHY
     Dosage: 5 MG, UNK
     Route: 065
     Dates: start: 201305, end: 20170913
  2. APIXABAN [Concomitant]
     Active Substance: APIXABAN
     Indication: DEEP VEIN THROMBOSIS
     Dosage: 2.5 MG, BID
     Route: 065
     Dates: start: 20180105
  3. CYCLOPHOSPHAMIDE. [Suspect]
     Active Substance: CYCLOPHOSPHAMIDE
     Indication: CHRONIC KIDNEY DISEASE
     Dosage: UNK
     Route: 065
     Dates: start: 20170915
  4. AIN457 [Suspect]
     Active Substance: SECUKINUMAB
     Indication: PSORIATIC ARTHROPATHY
     Dosage: 150 MG, UNK
     Route: 058
     Dates: start: 20150914, end: 20160228
  5. AIN457 [Suspect]
     Active Substance: SECUKINUMAB
     Dosage: 150 MG, UNK
     Route: 058
     Dates: start: 20160301, end: 20170815
  6. PREDNISONE. [Suspect]
     Active Substance: PREDNISONE
     Indication: CHRONIC KIDNEY DISEASE
     Dosage: 80 MG, UNK
     Route: 065
     Dates: start: 20170914

REACTIONS (4)
  - Febrile neutropenia [Recovered/Resolved]
  - Acute kidney injury [Recovered/Resolved]
  - Tendon rupture [Recovering/Resolving]
  - Sepsis [Recovered/Resolved]

NARRATIVE: CASE EVENT DATE: 20171023
